FAERS Safety Report 5318719-7 (Version None)
Quarter: 2007Q2

REPORT INFORMATION
  Report Type: 
  Country: None (occurrence: None)
  Receive Date: 20070503
  Receipt Date: 20070424
  Transmission Date: 20071010
  Serious: Yes (Other)
  Sender: FDA-Public Use
  Company Number: GXKR2007GR03735

PATIENT
  Age: 23 Year
  Sex: Female

DRUGS (3)
  1. AMISULPRIDE (NGX)(AMISULPRIDE) UNKNOWN [Suspect]
     Indication: SCHIZOPHRENIA
     Dosage: SEE IMAGE
  2. SERTRALINE [Suspect]
     Indication: DEPRESSION
     Dosage: 100 MG, QD
  3. PROGESTERONE [Concomitant]

REACTIONS (3)
  - AMENORRHOEA [None]
  - DRUG INTERACTION [None]
  - HYPERPROLACTINAEMIA [None]
